FAERS Safety Report 20984495 (Version 1)
Quarter: 2022Q2

REPORT INFORMATION
  Report Type: Other
  Country: US (occurrence: US)
  Receive Date: 20220621
  Receipt Date: 20220621
  Transmission Date: 20220721
  Serious: No
  Sender: FDA-Public Use
  Company Number: US-DECIPHERA PHARMACEUTICALS LLC-2022US000494

PATIENT
  Age: 59 Year
  Sex: Male

DRUGS (1)
  1. QINLOCK [Suspect]
     Active Substance: RIPRETINIB
     Indication: Product used for unknown indication
     Dosage: 200 MILLIGRAM (UNKNOWN FREQUENCY)

REACTIONS (3)
  - Nausea [Unknown]
  - Vomiting [Unknown]
  - Extra dose administered [Unknown]
